FAERS Safety Report 8502977-1 (Version None)
Quarter: 2012Q3

REPORT INFORMATION
  Report Type: 
  Country: None (occurrence: None)
  Receive Date: 20120705
  Receipt Date: 20120705
  Transmission Date: 20120928
  Serious: Yes (Disabling)
  Sender: FDA-Public Use
  Company Number: None

PATIENT
  Age: 36 Year
  Sex: Male
  Weight: 98 kg

DRUGS (2)
  1. LARIAM [Suspect]
     Indication: MALARIA PROPHYLAXIS
     Dosage: 1 TABLET WEEKLY PO
     Route: 048
     Dates: start: 20031015, end: 20040615
  2. LARIAM [Suspect]
     Indication: MALARIA PROPHYLAXIS
     Dosage: 1 TABLET WEEKLY PO
     Route: 048
     Dates: start: 20031015, end: 20040615

REACTIONS (8)
  - DEPRESSION [None]
  - ANGER [None]
  - ANXIETY [None]
  - SUICIDAL IDEATION [None]
  - INSOMNIA [None]
  - SKIN DISORDER [None]
  - ARTHRALGIA [None]
  - PAIN [None]
